FAERS Safety Report 6893886-2 (Version None)
Quarter: 2010Q3

REPORT INFORMATION
  Report Type: 
  Country: None (occurrence: None)
  Receive Date: 20100802
  Receipt Date: 20100722
  Transmission Date: 20110219
  Serious: No
  Sender: FDA-Public Use
  Company Number: US-BIOGENIDEC-2010BI025767

PATIENT
  Age: 46 Year
  Sex: Female

DRUGS (2)
  1. TYSABRI [Suspect]
     Indication: MULTIPLE SCLEROSIS
     Route: 042
     Dates: start: 20100325, end: 20100601
  2. TYSABRI [Suspect]
     Route: 042
     Dates: start: 20100601

REACTIONS (6)
  - ALOPECIA [None]
  - DEPRESSION [None]
  - FATIGUE [None]
  - FLUSHING [None]
  - INFLUENZA LIKE ILLNESS [None]
  - URTICARIA [None]
